FAERS Safety Report 8556440-2 (Version None)
Quarter: 2012Q3

REPORT INFORMATION
  Report Type: 
  Country: None (occurrence: None)
  Receive Date: 20120801
  Receipt Date: 20120727
  Transmission Date: 20120928
  Serious: Yes (Disabling)
  Sender: FDA-Public Use
  Company Number: PHHY2012JP002974

PATIENT
  Sex: Female

DRUGS (7)
  1. BUFFERIN [Concomitant]
     Dosage: 81 MG, DAILY
     Route: 048
     Dates: start: 20110517, end: 20110518
  2. LEVOTHYROXINE SODIUM [Concomitant]
     Dosage: 50 UG, DAILY
     Route: 048
  3. OLMESARTAN MEDOXOMIL [Concomitant]
     Dosage: 10 MG,DAILY
     Route: 048
  4. CRESTOR [Concomitant]
     Dosage: 2.5 MG, DAILY
     Route: 048
  5. RIZE [Concomitant]
     Dosage: 5 MG, DAILY
     Route: 048
  6. TASIGNA [Suspect]
     Indication: CHRONIC MYELOID LEUKAEMIA
     Dosage: 600 MG, DAILY
     Route: 048
     Dates: start: 20110517, end: 20110521
  7. FAMOTIDINE [Concomitant]
     Dosage: 20 MG, DAILY
     Route: 048

REACTIONS (1)
  - HEADACHE [None]
